FAERS Safety Report 6827734-3 (Version None)
Quarter: 2010Q3

REPORT INFORMATION
  Report Type: 
  Country: None (occurrence: None)
  Receive Date: 20100709
  Receipt Date: 20070124
  Transmission Date: 20110219
  Serious: No
  Sender: FDA-Public Use
  Company Number: US-PFIZER INC-2007008272

PATIENT
  Sex: Female
  Weight: 101.6 kg

DRUGS (4)
  1. CHANTIX [Suspect]
     Indication: SMOKING CESSATION THERAPY
     Dates: start: 20070114
  2. AMBIEN CR [Concomitant]
     Indication: INSOMNIA
  3. CARDIOVASCULAR SYSTEM DRUGS [Concomitant]
     Indication: HYPERTENSION
  4. PERCOCET [Concomitant]

REACTIONS (1)
  - INSOMNIA [None]
